FAERS Safety Report 5642669-X (Version None)
Quarter: 2008Q1

REPORT INFORMATION
  Report Type: 
  Country: None (occurrence: None)
  Receive Date: 20080226
  Receipt Date: 20080208
  Transmission Date: 20080703
  Serious: Yes (Life-Threatening)
  Sender: FDA-Public Use
  Company Number: MPS1-1000027

PATIENT
  Age: 2 Year
  Sex: Female
  Weight: 11.6 kg

DRUGS (4)
  1. ALDURAZYME (IARONIDASE) CONCENTRATE FOR SOLUTION FOR INFUSION [Suspect]
     Indication: MUCOPOLYSACCHARIDOSIS I
     Dosage: 0.5 MG/KG, INTRAVENOUS
     Route: 042
     Dates: start: 20070117
  2. BECLOMETHASONE DIPROPIONATE [Concomitant]
  3. SALBUTAMOL (SALBUTAMOL) [Concomitant]
  4. NIFEDIPINE [Concomitant]

REACTIONS (5)
  - CYANOSIS [None]
  - HEART RATE INCREASED [None]
  - OXYGEN SATURATION DECREASED [None]
  - RESPIRATORY RATE INCREASED [None]
  - TACHYPNOEA [None]
